FAERS Safety Report 8187852-7 (Version None)
Quarter: 2012Q1

REPORT INFORMATION
  Report Type: 
  Country: None (occurrence: None)
  Receive Date: 20120306
  Receipt Date: 20120229
  Transmission Date: 20120608
  Serious: Yes (Hospitalization, Other)
  Sender: FDA-Public Use
  Company Number: US-PFIZER INC-2010004104

PATIENT
  Sex: Female
  Weight: 63.492 kg

DRUGS (9)
  1. CHANTIX [Suspect]
     Indication: SMOKING CESSATION THERAPY
     Dosage: UNK
     Dates: end: 20021201
  2. OXYCONTIN [Concomitant]
     Indication: NECK PAIN
     Dosage: UNK, 2X/DAY
  3. CELEBREX [Suspect]
     Indication: NECK PAIN
  4. WELLBUTRIN [Suspect]
     Indication: DEPRESSION
     Dosage: UNK
  5. CELEBREX [Suspect]
     Indication: BACK PAIN
     Dosage: 200 MG DAILY
     Route: 048
     Dates: start: 20000301, end: 20021201
  6. VICODIN [Suspect]
     Indication: BACK PAIN
     Dosage: 17 TABLETS DAILY
  7. OXYCONTIN [Concomitant]
     Indication: BACK PAIN
     Dosage: 80 MG
     Route: 048
     Dates: start: 20000601
  8. XANAX [Suspect]
     Indication: SLEEP DISORDER
     Dosage: 6 MG, UNK
  9. CELEBREX [Suspect]

REACTIONS (14)
  - PULMONARY EMBOLISM [None]
  - PULMONARY FIBROSIS [None]
  - READING DISORDER [None]
  - CONSTIPATION [None]
  - BONE PAIN [None]
  - SCIATICA [None]
  - SLEEP DISORDER [None]
  - DRY MOUTH [None]
  - FEAR [None]
  - DEPRESSION [None]
  - IMMUNE SYSTEM DISORDER [None]
  - THROMBOSIS [None]
  - FLATULENCE [None]
  - COAGULOPATHY [None]
